FAERS Safety Report 10663577 (Version 1)
Quarter: 2014Q4

REPORT INFORMATION
  Report Type: Spontaneous
  Country: FR (occurrence: FR)
  Receive Date: 20141219
  Receipt Date: 20141219
  Transmission Date: 20150529
  Serious: Yes (Hospitalization)
  Sender: FDA-Public Use
  Company Number: FR-ROCHE-1509963

PATIENT
  Age: 78 Year
  Sex: Male

DRUGS (12)
  1. LEVOTHYROX [Concomitant]
     Active Substance: LEVOTHYROXINE
     Dosage: AS LONG TERM THERAPY, 50 MCG
     Route: 048
  2. SIMVASTATINE [Concomitant]
     Active Substance: SIMVASTATIN
     Dosage: AS LONG-TERM THERAPY
     Route: 048
  3. LOXAPAC [Suspect]
     Active Substance: LOXAPINE SUCCINATE
     Dosage: 2 INJECTIONS/DAY
     Route: 030
     Dates: start: 20140729, end: 20140801
  4. EUPANTOL [Concomitant]
     Active Substance: PANTOPRAZOLE SODIUM
     Dosage: AS LONG-TERM THERAPY, 40 MG
     Route: 048
  5. LOXAPAC [Suspect]
     Active Substance: LOXAPINE SUCCINATE
     Indication: PRODUCT USED FOR UNKNOWN INDICATION
     Route: 048
     Dates: start: 20140729, end: 20140802
  6. KARDEGIC [Concomitant]
     Active Substance: ASPIRIN LYSINE
     Dosage: AS LONG-TERM THERAPY, 160 MG
     Route: 048
  7. SECTRAL [Concomitant]
     Active Substance: ACEBUTOLOL HYDROCHLORIDE
     Dosage: AS LONG-TERM THERAPY, 200 MG
     Route: 048
  8. RIVOTRIL [Suspect]
     Active Substance: CLONAZEPAM
     Indication: PRODUCT USED FOR UNKNOWN INDICATION
     Dosage: AS LONG-TERM THERAPY, 1MG/ML
     Route: 042
  9. DAFALGAN [Concomitant]
     Active Substance: ACETAMINOPHEN
     Dosage: AS LONG-TERM THERAPY, 1G
     Route: 048
  10. XATRAL [Concomitant]
     Active Substance: ALFUZOSIN
     Dosage: AS LONG-TERM THERAPY, 2,5MG
     Route: 048
  11. URBANYL [Suspect]
     Active Substance: CLOBAZAM
     Indication: PRODUCT USED FOR UNKNOWN INDICATION
     Dosage: AS LONG-TERM THERAPY, 10MG
     Route: 048
  12. DEPAKINE [Concomitant]
     Active Substance: VALPROATE SODIUM
     Dosage: AS LONG TERM THERAPY
     Route: 048

REACTIONS (2)
  - Hypoxia [Unknown]
  - Respiratory distress [Unknown]

NARRATIVE: CASE EVENT DATE: 20140802
